FAERS Safety Report 24256104 (Version 1)
Quarter: 2024Q3

REPORT INFORMATION
  Report Type: Spontaneous
  Country: JP (occurrence: JP)
  Receive Date: 20240827
  Receipt Date: 20240827
  Transmission Date: 20241017
  Serious: Yes (Hospitalization, Other)
  Sender: NOVARTIS
  Company Number: JP-MTPC-MTPC2024-0017790

PATIENT
  Age: 33 Year

DRUGS (2)
  1. FINGOLIMOD HYDROCHLORIDE [Suspect]
     Active Substance: FINGOLIMOD HYDROCHLORIDE
     Indication: Product used for unknown indication
     Dosage: UNK
     Route: 048
  2. INTERFERON BETA-1B [Concomitant]
     Active Substance: INTERFERON BETA-1B
     Indication: Product used for unknown indication
     Dosage: UNK
     Route: 065

REACTIONS (10)
  - Disorientation [Unknown]
  - Acalculia [Unknown]
  - Agraphia [Unknown]
  - Neurologic neglect syndrome [Unknown]
  - Dyslalia [Unknown]
  - Hemiplegia [Unknown]
  - Hemiplegia [Unknown]
  - Sensory disturbance [Unknown]
  - Lymphocyte count decreased [Unknown]
  - Aphasia [Unknown]
